FAERS Safety Report 9257989 (Version 1)
Quarter: 2013Q1

REPORT INFORMATION
  Report Type: Spontaneous
  Country: US (occurrence: None)
  Receive Date: 20121212
  Receipt Date: 20121212
  Transmission Date: 20140127
  Serious: No
  Sender: FDA-Public Use
  Company Number: 1207USA005928

PATIENT
  Age: 63 Year
  Sex: Male

DRUGS (3)
  1. VICTRELIS [Suspect]
     Indication: HEPATITIS C
     Route: 048
     Dates: start: 20111202
  2. PEGINTRON [Suspect]
     Indication: HEPATITIS C
     Dates: start: 20111118
  3. RIBASPHERE [Suspect]
     Indication: HEPATITIS C

REACTIONS (3)
  - Anaemia [None]
  - Lower respiratory tract infection [None]
  - Ear infection [None]
